FAERS Safety Report 4773296-4 (Version None)
Quarter: 2005Q3

REPORT INFORMATION
  Report Type: 
  Country: None (occurrence: None)
  Receive Date: 20050916
  Receipt Date: 20050825
  Transmission Date: 20060218
  Serious: Yes (Hospitalization, Other)
  Sender: FDA-Public Use
  Company Number: USA050598544

PATIENT
  Age: 15 Year
  Sex: Female

DRUGS (2)
  1. CYMBALTA [Suspect]
     Indication: MAJOR DEPRESSION
     Dosage: 30 MG DAY
     Dates: start: 20050512, end: 20050516
  2. GEODON [Concomitant]

REACTIONS (10)
  - AGITATION [None]
  - ANGER [None]
  - CONVULSION [None]
  - DYSKINESIA [None]
  - EYE ROLLING [None]
  - HOSTILITY [None]
  - IRRITABILITY [None]
  - LOSS OF CONSCIOUSNESS [None]
  - TREMOR [None]
  - VITAMIN B12 DEFICIENCY [None]
